FAERS Safety Report 15681951 (Version 1)
Quarter: 2018Q4

REPORT INFORMATION
  Report Type: Spontaneous
  Country: JP (occurrence: JP)
  Receive Date: 20181203
  Receipt Date: 20181203
  Transmission Date: 20190205
  Serious: Yes (Other)
  Sender: FDA-Public Use
  Company Number: JP-PFIZER INC-2018210374

PATIENT
  Age: 78 Year
  Sex: Female
  Weight: 37.8 kg

DRUGS (12)
  1. BROTIZOLAM [Concomitant]
     Active Substance: BROTIZOLAM
     Dosage: 0.25 MG, UNK
     Route: 048
     Dates: start: 20170317
  2. DEPAKENE [Concomitant]
     Active Substance: VALPROIC ACID
     Dosage: 50 MG, UNK
     Route: 048
     Dates: start: 20170317
  3. ALOSENN [Concomitant]
     Active Substance: SENNA LEAF
     Dosage: 0.5 G, UNK
     Route: 048
     Dates: end: 20170317
  4. MAKYOYOKUKANTO [Concomitant]
     Dosage: 7.5 G, UNK
     Route: 048
     Dates: end: 20170317
  5. CALONAL [Concomitant]
     Active Substance: ACETAMINOPHEN
     Dosage: 1500 G, UNK
     Route: 048
     Dates: end: 20170317
  6. FOSPHENYTOIN SODIUM. [Suspect]
     Active Substance: FOSPHENYTOIN SODIUM
     Indication: GENERALISED TONIC-CLONIC SEIZURE
     Dosage: UNK
     Route: 065
  7. CELECOX [Suspect]
     Active Substance: CELECOXIB
     Dosage: UNK
  8. E KEPPRA [Suspect]
     Active Substance: LEVETIRACETAM
     Indication: GENERALISED TONIC-CLONIC SEIZURE
     Dosage: UNK
  9. FYCOMPA [Suspect]
     Active Substance: PERAMPANEL
     Indication: GENERALISED TONIC-CLONIC SEIZURE
     Dosage: UNK
     Route: 048
     Dates: start: 20161219, end: 20170317
  10. LOXOPROFEN NA [Concomitant]
     Active Substance: LOXOPROFEN SODIUM
     Dosage: 100 MG, UNK
     Route: 065
     Dates: end: 20170317
  11. OLMETEC [Suspect]
     Active Substance: OLMESARTAN MEDOXOMIL
     Dosage: UNK
  12. CALBLOCK [Concomitant]
     Active Substance: AZELNIDIPINE
     Dosage: 16 MG, UNK
     Route: 048
     Dates: start: 20170105

REACTIONS (1)
  - Rhabdomyolysis [Recovered/Resolved]

NARRATIVE: CASE EVENT DATE: 201608
